FAERS Safety Report 10551297 (Version 1)
Quarter: 2014Q4

REPORT INFORMATION
  Report Type: Spontaneous
  Country: US (occurrence: None)
  Receive Date: 20141020
  Receipt Date: 20141020
  Transmission Date: 20150529
  Serious: No
  Sender: FDA-Public Use
  Company Number: AEGR000699

PATIENT
  Age: 76 Year
  Sex: Male
  Weight: 93.9 kg

DRUGS (8)
  1. MULTIVITAMIN (VITAMINS NOS) [Concomitant]
     Active Substance: VITAMINS
  2. JUXTAPID [Suspect]
     Active Substance: LOMITAPIDE MESYLATE
     Indication: TYPE IIA HYPERLIPIDAEMIA
     Route: 048
     Dates: start: 20140611, end: 20140818
  3. IBUPROFEN (IBUPROFEN) [Suspect]
     Active Substance: IBUPROFEN
     Indication: NERVE COMPRESSION
     Dosage: 800 MG. TID X 5 DAYS
     Dates: start: 20140611, end: 20140818
  4. FINASTERIDE. [Concomitant]
     Active Substance: FINASTERIDE
  5. BENICAR [Concomitant]
     Active Substance: OLMESARTAN MEDOXOMIL
  6. FLOMAX (TAMSULOSIN HYDROCHLORIE) [Concomitant]
  7. ALLEGRA (FEXOFENADINE HYDROCHLORIDE) [Concomitant]
  8. METOPROLOL [Concomitant]
     Active Substance: METOPROLOL

REACTIONS (1)
  - Nerve compression [None]

NARRATIVE: CASE EVENT DATE: 201408
